FAERS Safety Report 25406766 (Version 2)
Quarter: 2025Q3

REPORT INFORMATION
  Report Type: Report from Study
  Country: CA (occurrence: CA)
  Receive Date: 20250606
  Receipt Date: 20250801
  Transmission Date: 20251020
  Serious: Yes (Other)
  Sender: TEVA
  Company Number: CA-TEVA-VS-3308875

PATIENT
  Age: 42 Year
  Sex: Female

DRUGS (8)
  1. OCTREOTIDE [Suspect]
     Active Substance: OCTREOTIDE
     Indication: Polycystic liver disease
     Route: 030
     Dates: start: 20250327
  2. OCTREOTIDE [Suspect]
     Active Substance: OCTREOTIDE
     Indication: Polycystic liver disease
     Route: 030
     Dates: start: 20250327
  3. OCTREOTIDE [Suspect]
     Active Substance: OCTREOTIDE
     Indication: Polycystic liver disease
     Route: 030
     Dates: start: 20250327
  4. TOLVAPTAN [Concomitant]
     Active Substance: TOLVAPTAN
     Indication: Product used for unknown indication
     Route: 065
  5. VITAMIN D [Concomitant]
     Active Substance: VITAMIN D NOS
     Indication: Product used for unknown indication
     Route: 065
  6. NAFTIFINE [Concomitant]
     Active Substance: NAFTIFINE
     Indication: Product used for unknown indication
     Route: 065
  7. BISOPROLOL [Concomitant]
     Active Substance: BISOPROLOL
     Indication: Product used for unknown indication
     Route: 065
  8. IRON [Concomitant]
     Active Substance: IRON
     Indication: Product used for unknown indication
     Route: 065

REACTIONS (5)
  - Pruritus [Recovering/Resolving]
  - Rash papular [Recovering/Resolving]
  - Diarrhoea [Recovered/Resolved]
  - Hypertension [Unknown]
  - Off label use [Unknown]

NARRATIVE: CASE EVENT DATE: 20250327
